FAERS Safety Report 5520683-2 (Version None)
Quarter: 2007Q4

REPORT INFORMATION
  Report Type: 
  Country: None (occurrence: None)
  Receive Date: 20071119
  Receipt Date: 20071115
  Transmission Date: 20080405
  Serious: Yes (Death)
  Sender: FDA-Public Use
  Company Number: PHEH2007US14830

PATIENT
  Age: 55 Year
  Sex: Female

DRUGS (24)
  1. EPOETIN NOS [Concomitant]
     Dosage: 4000UNITS SQ Q TUES
  2. LOVENOX [Suspect]
     Dosage: 40MG Q24H SQ
  3. NOVOLIN R [Concomitant]
     Dosage: SLIDING SCALE
  4. DOCUSATE SODIUM [Concomitant]
     Dosage: 100MG BID
  5. MARINOL [Concomitant]
     Dosage: 2.5MG BID
  6. FOLIC ACID [Concomitant]
     Dosage: 1MG QD
  7. AMI-TEX LA [Concomitant]
     Dosage: Q8H
  8. REGLAN [Concomitant]
     Dosage: 5MG AC
  9. THERAVITE [Concomitant]
     Dosage: 5ML QD
  10. ZOFRAN [Concomitant]
     Dosage: 8MG Q8H
  11. PROTONIX [Concomitant]
     Dosage: 40MG QD
  12. KLOR-CON [Concomitant]
     Dosage: 8MEQ QD
  13. PREDNISONE TAB [Concomitant]
     Dosage: 10MG QAM
  14. LYRICA [Concomitant]
     Dosage: 50MG QHS
  15. BACTRIM [Concomitant]
     Dosage: 40ML MON, WED, FRI
  16. ULTRAM [Concomitant]
     Dosage: 50MG BID
  17. DIFLUCAN [Concomitant]
     Dosage: 200MG QD
  18. KEPPRA [Concomitant]
     Dosage: 20.5ML HS
  19. RITALIN [Concomitant]
     Dosage: 10MG QAM
  20. PHENYTOIN [Concomitant]
     Dosage: 200MG BID
  21. VITAMIN B6 [Concomitant]
     Dosage: 15MG QD
  22. ZOLOFT [Concomitant]
     Dosage: 100MG QHS
  23. ZONEGRAN [Concomitant]
     Dosage: 200MG Q12H
  24. LOPRESSOR [Suspect]
     Dosage: 12.5 MG BID
     Dates: start: 20070101

REACTIONS (5)
  - HYPERSENSITIVITY [None]
  - HYPOTENSION [None]
  - PULMONARY EMBOLISM [None]
  - RESPIRATORY RATE DECREASED [None]
  - UNRESPONSIVE TO STIMULI [None]
